FAERS Safety Report 17866451 (Version 1)
Quarter: 2020Q2

REPORT INFORMATION
  Report Type: Spontaneous
  Country: US (occurrence: US)
  Receive Date: 20200605
  Receipt Date: 20200605
  Transmission Date: 20200714
  Serious: Yes (Hospitalization)
  Sender: FDA-Public Use
  Company Number: US-GILEAD-2020-0469160

PATIENT
  Age: 82 Year
  Sex: Female
  Weight: 50.9 kg

DRUGS (1)
  1. REMDESIVIR. [Suspect]
     Active Substance: REMDESIVIR
     Indication: COVID-19
     Dosage: 200 MG, QD
     Route: 042
     Dates: start: 20200522, end: 20200522

REACTIONS (3)
  - Myalgia [Unknown]
  - Headache [Recovered/Resolved]
  - Rash papular [Unknown]

NARRATIVE: CASE EVENT DATE: 20200522
